FAERS Safety Report 5995471-3 (Version None)
Quarter: 2008Q4

REPORT INFORMATION
  Report Type: 
  Country: None (occurrence: None)
  Receive Date: 20081212
  Receipt Date: 20080626
  Transmission Date: 20090506
  Serious: No
  Sender: FDA-Public Use
  Company Number: US-AMGEN-KDL288293

PATIENT
  Sex: Female
  Weight: 65.4 kg

DRUGS (6)
  1. ENBREL [Suspect]
     Indication: RHEUMATOID ARTHRITIS
     Route: 058
     Dates: start: 20061227
  2. SYNTHROID [Concomitant]
  3. IBUPROFEN [Concomitant]
  4. CLARITIN [Concomitant]
  5. PAROXETINE HCL [Concomitant]
  6. CLONIDINE [Concomitant]

REACTIONS (6)
  - CERVICITIS [None]
  - CERVIX HAEMORRHAGE UTERINE [None]
  - FALL [None]
  - LACERATION [None]
  - VAGINITIS BACTERIAL [None]
  - VULVOVAGINAL MYCOTIC INFECTION [None]
